FAERS Safety Report 5450402-X (Version None)
Quarter: 2007Q3

REPORT INFORMATION
  Report Type: 
  Country: None (occurrence: None)
  Receive Date: 20070803
  Receipt Date: 20070615
  Transmission Date: 20080115
  Serious: Yes (Other)
  Sender: FDA-Public Use
  Company Number: 38206

PATIENT
  Age: 51 Year
  Sex: Male
  Weight: 95.2554 kg

DRUGS (3)
  1. PROPOFOL [Suspect]
     Indication: COLONOSCOPY
     Dosage: 200MG, IV
     Route: 042
     Dates: start: 20070523
  2. LIPITOR [Concomitant]
  3. LEVATOL [Concomitant]

REACTIONS (1)
  - INFLUENZA LIKE ILLNESS [None]
